FAERS Safety Report 8773627 (Version 2)
Quarter: 2012Q4

REPORT INFORMATION
  Report Type: 
  Country: FR (occurrence: FR)
  Receive Date: 20120907
  Receipt Date: 20120907
  Transmission Date: 20130627
  Serious: Yes (Other)
  Sender: FDA-Public Use
  Company Number: PHHY2012FR028366

PATIENT
  Age: 63 Year
  Sex: Male

DRUGS (1)
  1. TASIGNA [Suspect]
     Indication: CHRONIC MYELOID LEUKAEMIA
     Dosage: 800 mg/day
     Route: 048
     Dates: start: 201010, end: 201203

REACTIONS (3)
  - Arteritis [Unknown]
  - Peripheral arterial occlusive disease [Unknown]
  - Pain in extremity [Unknown]
